FAERS Safety Report 24049426 (Version 1)
Quarter: 2024Q3

REPORT INFORMATION
  Report Type: Spontaneous
  Country: US (occurrence: US)
  Receive Date: 20240704
  Receipt Date: 20240704
  Transmission Date: 20241016
  Serious: No
  Sender: QILU PHARMACEUTICAL
  Company Number: US-QILU PHARMACEUTICAL (HAINAN) CO.  LTD.-QLH-000074-2023

PATIENT
  Age: 58 Year
  Sex: Female

DRUGS (1)
  1. OXALIPLATIN [Suspect]
     Active Substance: OXALIPLATIN
     Indication: Product used for unknown indication
     Dosage: UNKNOWN
     Route: 042

REACTIONS (1)
  - Rash [Unknown]

NARRATIVE: CASE EVENT DATE: 20230413
